FAERS Safety Report 5122799-1 (Version None)
Quarter: 2006Q4

REPORT INFORMATION
  Report Type: 
  Country: None (occurrence: None)
  Receive Date: 20061004
  Receipt Date: 20060919
  Transmission Date: 20070319
  Serious: Yes (Death)
  Sender: FDA-Public Use
  Company Number: 200609IM000539

PATIENT
  Age: 48 Year
  Sex: Female

DRUGS (1)
  1. ACTIMMUNE [Suspect]
     Indication: SYSTEMIC SCLEROSIS
     Dosage: 85 UG, TIW, SUBCUTANEOUS
     Route: 058
     Dates: start: 20020101

REACTIONS (4)
  - CARDIAC TAMPONADE [None]
  - PERICARDIAL FIBROSIS [None]
  - PULMONARY FIBROSIS [None]
  - RESPIRATORY FAILURE [None]
